FAERS Safety Report 9520643 (Version 1)
Quarter: 2013Q3

REPORT INFORMATION
  Report Type: Spontaneous
  Country: FR (occurrence: FR)
  Receive Date: 20130913
  Receipt Date: 20130913
  Transmission Date: 20140515
  Serious: Yes (Hospitalization)
  Sender: FDA-Public Use
  Company Number: FR-ROCHE-1272827

PATIENT
  Age: 61 Year
  Sex: Male

DRUGS (11)
  1. MABTHERA [Suspect]
     Indication: B-CELL LYMPHOMA
     Route: 065
     Dates: start: 20130725
  2. MABTHERA [Suspect]
     Route: 065
     Dates: start: 20130801
  3. ACTISKENAN [Concomitant]
     Route: 065
     Dates: start: 20130717
  4. XANAX [Concomitant]
     Route: 065
     Dates: start: 20130719
  5. INEXIUM [Concomitant]
     Route: 065
     Dates: start: 20130730
  6. SECTRAL [Concomitant]
  7. BENEMID [Concomitant]
  8. SANDIMMUN [Concomitant]
  9. IMUREL [Concomitant]
  10. ELISOR [Concomitant]
  11. ACETYLSALICYLIC ACID [Concomitant]

REACTIONS (2)
  - Arthritis [Unknown]
  - C-reactive protein increased [Unknown]
